FAERS Safety Report 7827221-X (Version None)
Quarter: 2011Q4

REPORT INFORMATION
  Report Type: 
  Country: None (occurrence: None)
  Receive Date: 20111020
  Receipt Date: 20111013
  Transmission Date: 20120403
  Serious: Yes (Hospitalization)
  Sender: FDA-Public Use
  Company Number: JP-NOVOPROD-336465

PATIENT

DRUGS (10)
  1. GASMOTIN [Concomitant]
     Dosage: 10 MG, QD
     Route: 048
  2. VICTOZA [Suspect]
     Indication: TYPE 2 DIABETES MELLITUS
     Dosage: 0.3 MG, QD
     Route: 058
     Dates: start: 20110224
  3. VICTOZA [Suspect]
     Dosage: 0.9 MG, QD
     Route: 058
     Dates: start: 20110331, end: 20111003
  4. CEFAZOLIN SODIUM [Concomitant]
     Dosage: 3 G, QD
     Route: 048
     Dates: start: 20110915, end: 20111003
  5. AMARYL [Concomitant]
     Dosage: 3 MG, QD
     Route: 048
     Dates: start: 20071207, end: 20111003
  6. BASEN [Concomitant]
     Dosage: 0.6 MG, QD
     Route: 048
     Dates: start: 20100325, end: 20111003
  7. METFORMIN HCL [Concomitant]
     Dosage: 2250 MG, QD
     Route: 048
     Dates: start: 20100729, end: 20111003
  8. VICTOZA [Suspect]
     Dosage: 0.6 MG, QD
     Route: 058
     Dates: start: 20110303
  9. MUCOSTA [Concomitant]
     Dosage: 300 MG, QD
     Route: 048
     Dates: start: 20090119
  10. LANSOPRAZOLE [Concomitant]
     Dosage: 30 MG, QD
     Route: 048
     Dates: start: 20090302

REACTIONS (5)
  - INTENTIONAL OVERDOSE [None]
  - NAUSEA [None]
  - SUICIDE ATTEMPT [None]
  - GASTROINTESTINAL DISORDER [None]
  - HEADACHE [None]
